FAERS Safety Report 10203149 (Version 1)
Quarter: 2014Q2

REPORT INFORMATION
  Report Type: Spontaneous
  Country: GB (occurrence: GB)
  Receive Date: 20140529
  Receipt Date: 20140529
  Transmission Date: 20141212
  Serious: Yes (Hospitalization, Other)
  Sender: FDA-Public Use
  Company Number: 2014SP002890

PATIENT
  Sex: Female
  Weight: 70 kg

DRUGS (11)
  1. FLUOROURACIL [Suspect]
     Indication: CHEMOTHERAPY
  2. CAPECITABINE [Suspect]
     Indication: CHEMOTHERAPY
  3. ATORVASTATIN [Concomitant]
     Route: 048
  4. CODEINE PHOSPHATE [Concomitant]
  5. PARACETAMOL [Concomitant]
  6. LANSOPRAZOLE [Concomitant]
     Route: 048
  7. MACROGOL 3350 [Concomitant]
  8. POLYETHYLENE GLYCOL 3350 [Concomitant]
  9. POTASSIUM CHLORIDE [Concomitant]
  10. SODIUM BICARBONATE [Concomitant]
  11. SODIUM CHLORIDE [Concomitant]

REACTIONS (2)
  - Atrial fibrillation [Recovered/Resolved]
  - Chest pain [Recovered/Resolved]
